FAERS Safety Report 22129539 (Version 1)
Quarter: 2023Q1

REPORT INFORMATION
  Report Type: Spontaneous
  Country: CA (occurrence: None)
  Receive Date: 20230323
  Receipt Date: 20230323
  Transmission Date: 20230417
  Serious: Yes (Other)
  Sender: FDA-Public Use
  Company Number: 2023A065260

PATIENT
  Age: 41 Year
  Sex: Male
  Weight: 114 kg

DRUGS (24)
  1. BUDESONIDE\FORMOTEROL FUMARATE [Suspect]
     Active Substance: BUDESONIDE\FORMOTEROL FUMARATE
     Indication: Asthma
  2. BUDESONIDE\FORMOTEROL FUMARATE [Suspect]
     Active Substance: BUDESONIDE\FORMOTEROL FUMARATE
     Indication: Asthma
  3. ACYCLOVIR [Suspect]
     Active Substance: ACYCLOVIR
     Indication: Steroid dependence
  4. ACYCLOVIR SODIUM [Suspect]
     Active Substance: ACYCLOVIR SODIUM
     Indication: Steroid dependence
  5. AMLODIPINE BESYLATE [Suspect]
     Active Substance: AMLODIPINE BESYLATE
     Indication: Blood pressure increased
     Route: 048
  6. AMLODIPINE BESYLATE [Suspect]
     Active Substance: AMLODIPINE BESYLATE
     Indication: Blood pressure increased
     Route: 048
  7. BACTRIM [Suspect]
     Active Substance: SULFAMETHOXAZOLE\TRIMETHOPRIM
     Indication: Steroid dependence
  8. CALCIUM CARBONATE [Suspect]
     Active Substance: CALCIUM CARBONATE
     Indication: Steroid dependence
  9. ERGOCALCIFEROL [Suspect]
     Active Substance: ERGOCALCIFEROL
     Indication: Steroid dependence
  10. FLOVENT [Suspect]
     Active Substance: FLUTICASONE PROPIONATE
     Indication: Product used for unknown indication
  11. HYDROXYUREA [Suspect]
     Active Substance: HYDROXYUREA
     Indication: Metabolic disorder
  12. PANTOPRAZOLE [Suspect]
     Active Substance: PANTOPRAZOLE
     Indication: Eosinophilic granulomatosis with polyangiitis
  13. PANTOPRAZOLE [Suspect]
     Active Substance: PANTOPRAZOLE
     Indication: Asthma
  14. PANTOPRAZOLE [Suspect]
     Active Substance: PANTOPRAZOLE
     Indication: Eosinophilic granulomatosis with polyangiitis
  15. PANTOPRAZOLE [Suspect]
     Active Substance: PANTOPRAZOLE
     Indication: Asthma
  16. PREDNISONE [Suspect]
     Active Substance: PREDNISONE
     Indication: Eosinophilic granulomatosis with polyangiitis
  17. PREDNISONE [Suspect]
     Active Substance: PREDNISONE
     Indication: Asthma
  18. PREDNISONE [Suspect]
     Active Substance: PREDNISONE
     Indication: Eosinophilic granulomatosis with polyangiitis
  19. PREDNISONE [Suspect]
     Active Substance: PREDNISONE
     Indication: Asthma
  20. ALBUTEROL [Suspect]
     Active Substance: ALBUTEROL
     Indication: Asthma
  21. ALBUTEROL [Suspect]
     Active Substance: ALBUTEROL
     Indication: Asthma
  22. ALBUTEROL [Suspect]
     Active Substance: ALBUTEROL
     Indication: Asthma
  23. ALBUTEROL [Suspect]
     Active Substance: ALBUTEROL
     Indication: Asthma
  24. VENLAFAXINE HYDROCHLORIDE [Suspect]
     Active Substance: VENLAFAXINE HYDROCHLORIDE
     Indication: Depression

REACTIONS (10)
  - Antineutrophil cytoplasmic antibody positive [Not Recovered/Not Resolved]
  - Asthma [Not Recovered/Not Resolved]
  - Disease recurrence [Not Recovered/Not Resolved]
  - Dyspnoea [Not Recovered/Not Resolved]
  - Full blood count abnormal [Not Recovered/Not Resolved]
  - Loss of personal independence in daily activities [Not Recovered/Not Resolved]
  - Nasal polyps [Not Recovered/Not Resolved]
  - Sleep disorder due to a general medical condition [Not Recovered/Not Resolved]
  - Therapeutic product effect incomplete [Not Recovered/Not Resolved]
  - Wheezing [Not Recovered/Not Resolved]
